FAERS Safety Report 9262377 (Version 1)
Quarter: 2013Q2

REPORT INFORMATION
  Report Type: Spontaneous
  Country: US (occurrence: None)
  Receive Date: 20130424
  Receipt Date: 20130424
  Transmission Date: 20140414
  Serious: Yes (Other)
  Sender: FDA-Public Use
  Company Number: 1303-442

PATIENT
  Age: 65 Year
  Sex: Male
  Weight: 108.86 kg

DRUGS (10)
  1. EYLEA [Suspect]
     Indication: AGE-RELATED MACULAR DEGENERATION
     Dosage: 2 MG, INTRAVITREAL
     Dates: start: 20120419, end: 20130220
  2. ASPIRIN (ACETYLSALICYLIC ACID) [Concomitant]
  3. NEXIUM (ESOMEPRAZOLE SODIUM) [Concomitant]
  4. DILTIAZEM [Concomitant]
  5. KLOR CON (POTASSIUM CHLORIDE) [Concomitant]
  6. LISINOPRIL /HCTZ/ (ZESTORECTIC) [Concomitant]
  7. OMEGA 3 (FISH OIL) [Concomitant]
  8. FISH OIL (FISH OIL) [Concomitant]
  9. MACULAR ASSIST (MACULA SUPPORT) [Concomitant]
  10. BROMOCRIPTINE (BROMOCRIPTINE) [Concomitant]

REACTIONS (2)
  - Retinal detachment [None]
  - Retinal tear [None]
